FAERS Safety Report 11422040 (Version 1)
Quarter: 2015Q3

REPORT INFORMATION
  Report Type: Spontaneous
  Country: US (occurrence: None)
  Receive Date: 20150825
  Receipt Date: 20150825
  Transmission Date: 20151125
  Serious: Yes (Hospitalization)
  Sender: FDA-Public Use
  Company Number: COM-003448

PATIENT
  Sex: Female

DRUGS (1)
  1. DOCUSATE SODIUM. [Suspect]
     Active Substance: DOCUSATE SODIUM
     Indication: FAECES HARD
     Dosage: 1 SOFTGEL SOMETIMES THEN 3 SOFTGELS ONCE, ORAL
     Route: 048
     Dates: start: 20150701, end: 20150730

REACTIONS (4)
  - Dehydration [None]
  - Abdominal pain [None]
  - Hyponatraemia [None]
  - Headache [None]

NARRATIVE: CASE EVENT DATE: 20150731
